FAERS Safety Report 8785989 (Version 3)
Quarter: 2012Q4

REPORT INFORMATION
  Report Type: 
  Country: DK (occurrence: GB)
  Receive Date: 20120914
  Receipt Date: 20121220
  Transmission Date: 20130627
  Serious: Yes (Death)
  Sender: FDA-Public Use
  Company Number: GB-FRI-1000038584

PATIENT
  Age: 31 Year
  Sex: Male

DRUGS (7)
  1. ESCITALOPRAM [Suspect]
     Indication: DEPRESSION
     Dosage: 10 mg
     Route: 048
     Dates: start: 20120823
  2. ESCITALOPRAM [Suspect]
     Route: 048
     Dates: start: 20120824
  3. QUETIAPINE [Suspect]
     Indication: DEPRESSION
     Dosage: 450 mg daily in divided doses
     Route: 048
     Dates: start: 2011
  4. QUETIAPINE [Suspect]
     Route: 048
     Dates: start: 20120824
  5. MIRTAZAPINE [Suspect]
     Indication: DEPRESSION
     Dosage: 45 mg
     Route: 048
     Dates: start: 2012
  6. MIRTAZAPINE [Suspect]
     Route: 048
     Dates: start: 20120824
  7. DIAZEPAM [Concomitant]
     Dosage: 5 mg
     Route: 048

REACTIONS (1)
  - Overdose [Fatal]
